FAERS Safety Report 18597595 (Version 7)
Quarter: 2022Q4

REPORT INFORMATION
  Report Type: Report from Study
  Country: JP (occurrence: JP)
  Receive Date: 20201210
  Receipt Date: 20221215
  Transmission Date: 20230113
  Serious: Yes (Other)
  Sender: FDA-Public Use
  Company Number: JP-CELLTRION INC.-2020JP033375

PATIENT

DRUGS (28)
  1. INVESTIGATIONAL BIOSIMILARS [Suspect]
     Active Substance: INVESTIGATIONAL BIOSIMILARS
     Indication: HER2 positive gastric cancer
     Dosage: 400 MG, QD
     Route: 041
     Dates: start: 20200427, end: 20200427
  2. INVESTIGATIONAL BIOSIMILARS [Suspect]
     Active Substance: INVESTIGATIONAL BIOSIMILARS
     Dosage: 280 MG, QD
     Route: 041
     Dates: start: 20200525, end: 20200525
  3. INVESTIGATIONAL BIOSIMILARS [Suspect]
     Active Substance: INVESTIGATIONAL BIOSIMILARS
     Dosage: 280 MG, QD
     Route: 041
     Dates: start: 20200622, end: 20200622
  4. INVESTIGATIONAL BIOSIMILARS [Suspect]
     Active Substance: INVESTIGATIONAL BIOSIMILARS
     Dosage: 280 MG, QD
     Route: 041
     Dates: start: 20200713, end: 20200713
  5. INVESTIGATIONAL BIOSIMILARS [Suspect]
     Active Substance: INVESTIGATIONAL BIOSIMILARS
     Dosage: 280 MG, QD
     Route: 041
     Dates: start: 20200803, end: 20200803
  6. INVESTIGATIONAL BIOSIMILARS [Suspect]
     Active Substance: INVESTIGATIONAL BIOSIMILARS
     Dosage: 280 MG, QD
     Route: 041
     Dates: start: 20200824, end: 20200824
  7. INVESTIGATIONAL BIOSIMILARS [Suspect]
     Active Substance: INVESTIGATIONAL BIOSIMILARS
     Dosage: 280 MG, QD
     Route: 041
     Dates: start: 20200914, end: 20200914
  8. INVESTIGATIONAL BIOSIMILARS [Suspect]
     Active Substance: INVESTIGATIONAL BIOSIMILARS
     Dosage: 280 MG, QD
     Route: 041
     Dates: start: 20201005, end: 20201005
  9. INVESTIGATIONAL BIOSIMILARS [Suspect]
     Active Substance: INVESTIGATIONAL BIOSIMILARS
     Dosage: 280 MG, QD
     Route: 041
     Dates: start: 20201026, end: 20201026
  10. INVESTIGATIONAL BIOSIMILARS [Suspect]
     Active Substance: INVESTIGATIONAL BIOSIMILARS
     Dosage: 280 MG, QD
     Route: 041
     Dates: start: 20201116, end: 20201116
  11. CISPLATIN [Suspect]
     Active Substance: CISPLATIN
     Indication: HER2 positive gastric cancer
     Dosage: 122 MILLIGRAM, QD
     Route: 041
     Dates: start: 20200427, end: 20200427
  12. CISPLATIN [Suspect]
     Active Substance: CISPLATIN
     Dosage: 90 MILLIGRAM QD
     Route: 041
     Dates: start: 20200525, end: 20200525
  13. CAPECITABINE [Suspect]
     Active Substance: CAPECITABINE
     Indication: HER2 positive gastric cancer
     Dosage: 3000 MG, QD
     Route: 048
     Dates: start: 20200427, end: 20200501
  14. CAPECITABINE [Suspect]
     Active Substance: CAPECITABINE
     Dosage: 3000 MG, QD
     Route: 048
     Dates: start: 20200525, end: 20200529
  15. CAPECITABINE [Suspect]
     Active Substance: CAPECITABINE
     Dosage: 2400 MG, QD
     Route: 048
     Dates: start: 20200713, end: 20200723
  16. CAPECITABINE [Suspect]
     Active Substance: CAPECITABINE
     Dosage: 1800 MG, QD
     Route: 048
     Dates: start: 20200824, end: 20200901
  17. CAPECITABINE [Suspect]
     Active Substance: CAPECITABINE
     Dosage: 1800 MG, QD
     Route: 048
     Dates: start: 20200914, end: 20200927
  18. CAPECITABINE [Suspect]
     Active Substance: CAPECITABINE
     Dosage: 1800 MG, QD
     Route: 048
     Dates: start: 20201005, end: 20201018
  19. CAPECITABINE [Suspect]
     Active Substance: CAPECITABINE
     Dosage: 1800 MG, QD
     Route: 048
     Dates: start: 20201026, end: 20201108
  20. CARBOCYSTEINE [Concomitant]
     Active Substance: CARBOCYSTEINE
     Indication: Mycobacterium avium complex infection
     Dosage: UNK
     Route: 065
     Dates: end: 20201116
  21. CARBOCYSTEINE [Concomitant]
     Active Substance: CARBOCYSTEINE
     Indication: Sinusitis
  22. APREPITANT [Concomitant]
     Active Substance: APREPITANT
     Indication: Prophylaxis of nausea and vomiting
     Dosage: UNK
     Dates: start: 20200429, end: 20200528
  23. DEXAMETHASONE [Concomitant]
     Active Substance: DEXAMETHASONE
     Indication: Prophylaxis of nausea and vomiting
     Dosage: UNK
     Dates: start: 20200429, end: 20200525
  24. DEXAMETHASONE [Concomitant]
     Active Substance: DEXAMETHASONE
     Indication: Vomiting
  25. DECADRON [Concomitant]
     Active Substance: DEXAMETHASONE
     Indication: Prophylaxis of nausea and vomiting
     Dosage: UNK
     Dates: start: 20200428, end: 20200529
  26. DECADRON [Concomitant]
     Active Substance: DEXAMETHASONE
     Indication: Vomiting
  27. METOCLOPRAMIDE [Concomitant]
     Active Substance: METOCLOPRAMIDE
     Indication: Prophylaxis of nausea and vomiting
     Dosage: UNK UNK, PRN
     Dates: start: 20200429, end: 20200605
  28. METOCLOPRAMIDE [Concomitant]
     Active Substance: METOCLOPRAMIDE
     Indication: Vomiting

REACTIONS (14)
  - Hydronephrosis [Not Recovered/Not Resolved]
  - Neuropathy peripheral [Not Recovered/Not Resolved]
  - Palmar-plantar erythrodysaesthesia syndrome [Not Recovered/Not Resolved]
  - Decreased appetite [Recovering/Resolving]
  - Malaise [Recovered/Resolved]
  - Nausea [Not Recovered/Not Resolved]
  - Vomiting [Recovering/Resolving]
  - Weight decreased [Recovered/Resolved]
  - Anaemia [Not Recovered/Not Resolved]
  - Hypertension [Recovered/Resolved]
  - Oedema peripheral [Not Recovered/Not Resolved]
  - Sinusitis [Recovering/Resolving]
  - Off label use [Unknown]
  - Underdose [Unknown]

NARRATIVE: CASE EVENT DATE: 20200427
